FAERS Safety Report 6191111-1 (Version None)
Quarter: 2009Q2

REPORT INFORMATION
  Report Type: 
  Country: None (occurrence: None)
  Receive Date: 20090515
  Receipt Date: 20090514
  Transmission Date: 20091009
  Serious: Yes (Hospitalization)
  Sender: FDA-Public Use
  Company Number: FR-WYE-G03655109

PATIENT
  Age: 18 Day
  Sex: Female
  Weight: 3 kg

DRUGS (1)
  1. ADVIL [Suspect]
     Indication: PYREXIA
     Dosage: 2 OR 3 DOSES OF ADVIL SUSPENSION DUE TO HER WEIGHT OF 3 KG; DOSE UNKNOWN
     Route: 048
     Dates: start: 20090504, end: 20090505

REACTIONS (2)
  - DRUG INEFFECTIVE [None]
  - INAPPROPRIATE SCHEDULE OF DRUG ADMINISTRATION [None]
